FAERS Safety Report 9716826 (Version 5)
Quarter: 2015Q3

REPORT INFORMATION
  Report Type: Spontaneous
  Country: JP (occurrence: JP)
  Receive Date: 20131127
  Receipt Date: 20150707
  Transmission Date: 20151125
  Serious: Yes (Life-Threatening, Hospitalization)
  Sender: FDA-Public Use
  Company Number: JP-SA-2013SA121321

PATIENT
  Age: 69 Year
  Sex: Male
  Weight: 52 kg

DRUGS (17)
  1. ELPLAT [Suspect]
     Active Substance: OXALIPLATIN
     Indication: RECTAL CANCER METASTATIC
     Dosage: INJECTION
     Route: 041
     Dates: start: 20120112, end: 20120112
  2. ELPLAT [Suspect]
     Active Substance: OXALIPLATIN
     Indication: RECTAL CANCER METASTATIC
     Dosage: INJECTION
     Route: 041
     Dates: start: 20120420, end: 20120420
  3. XELODA [Concomitant]
     Active Substance: CAPECITABINE
     Indication: RECTAL CANCER
     Dates: start: 20120203, end: 20120217
  4. PALONOSETRON HYDROCHLORIDE [Concomitant]
     Active Substance: PALONOSETRON HYDROCHLORIDE
     Dates: start: 20120112, end: 20120420
  5. ELPLAT [Suspect]
     Active Substance: OXALIPLATIN
     Indication: RECTAL CANCER METASTATIC
     Dosage: INJECTION
     Route: 041
     Dates: start: 20120330, end: 20120330
  6. NAPROXEN SODIUM. [Concomitant]
     Active Substance: NAPROXEN SODIUM
     Dates: start: 20120112
  7. MAGNESIUM OXIDE. [Concomitant]
     Active Substance: MAGNESIUM OXIDE
     Dates: start: 20120127
  8. XELODA [Concomitant]
     Active Substance: CAPECITABINE
     Indication: RECTAL CANCER
     Dates: start: 20120112, end: 20120126
  9. XELODA [Concomitant]
     Active Substance: CAPECITABINE
     Indication: RECTAL CANCER
     Dates: start: 20120330, end: 20120412
  10. REBAMIPIDE [Concomitant]
     Active Substance: REBAMIPIDE
     Dates: start: 20120112
  11. HIRUDOID [Concomitant]
     Active Substance: GLYCOSAMINOGLYCANS
     Dosage: OINTMENT, CREAM
     Dates: start: 20120112
  12. DEXAMETHASONE. [Concomitant]
     Active Substance: DEXAMETHASONE
     Dates: start: 20120204, end: 20120206
  13. LANSOPRAZOLE. [Concomitant]
     Active Substance: LANSOPRAZOLE
     Dates: start: 20120112
  14. ELPLAT [Suspect]
     Active Substance: OXALIPLATIN
     Indication: RECTAL CANCER METASTATIC
     Dosage: INJECTION
     Route: 041
     Dates: start: 20120203, end: 20120203
  15. DEXAMETHASONE SODIUM PHOSPHATE. [Concomitant]
     Active Substance: DEXAMETHASONE SODIUM PHOSPHATE
     Dates: start: 20120112, end: 20120420
  16. SENNOSIDE A+B [Concomitant]
     Active Substance: SENNOSIDES A AND B
     Dates: start: 20120127
  17. XELODA [Concomitant]
     Active Substance: CAPECITABINE
     Indication: RECTAL CANCER
     Dates: start: 20120420, end: 20120429

REACTIONS (37)
  - Blood lactate dehydrogenase increased [Recovering/Resolving]
  - Gamma-glutamyltransferase increased [Recovering/Resolving]
  - Disseminated intravascular coagulation [Recovering/Resolving]
  - Coagulopathy [Recovering/Resolving]
  - Alanine aminotransferase increased [Recovering/Resolving]
  - Blood glucose increased [Recovering/Resolving]
  - Hepatic fibrosis [Unknown]
  - Venoocclusive liver disease [Recovering/Resolving]
  - Hepatitis fulminant [Recovering/Resolving]
  - Altered state of consciousness [Recovering/Resolving]
  - Serum ferritin increased [Recovering/Resolving]
  - Blood albumin decreased [Recovering/Resolving]
  - Ascites [Recovering/Resolving]
  - Antithrombin III decreased [Recovering/Resolving]
  - Blood pressure decreased [Recovering/Resolving]
  - Necrosis [Recovering/Resolving]
  - Venous thrombosis [Recovered/Resolved]
  - Ammonia increased [Recovering/Resolving]
  - Aspartate aminotransferase increased [Recovering/Resolving]
  - Hepatic vein stenosis [Unknown]
  - Platelet count decreased [Recovering/Resolving]
  - Fibrin degradation products increased [Recovering/Resolving]
  - Hepatomegaly [Recovering/Resolving]
  - Blood alkaline phosphatase increased [Recovering/Resolving]
  - Blood bilirubin increased [Recovering/Resolving]
  - Abdominal tenderness [Recovering/Resolving]
  - Purpura [Unknown]
  - Ocular icterus [Recovering/Resolving]
  - Hepatic failure [Recovering/Resolving]
  - Fatigue [Recovering/Resolving]
  - Asterixis [Recovering/Resolving]
  - C-reactive protein increased [Recovering/Resolving]
  - Portal hypertension [Recovering/Resolving]
  - Blood fibrinogen increased [Recovering/Resolving]
  - Periportal sinus dilatation [Recovering/Resolving]
  - Asthenia [Recovering/Resolving]
  - Hepatic encephalopathy [Unknown]

NARRATIVE: CASE EVENT DATE: 20120430
